FAERS Safety Report 6814521-5 (Version None)
Quarter: 2010Q3

REPORT INFORMATION
  Report Type: 
  Country: None (occurrence: None)
  Receive Date: 20100702
  Receipt Date: 20100624
  Transmission Date: 20110219
  Serious: Yes (Hospitalization)
  Sender: FDA-Public Use
  Company Number: US-JNJFOC-20100607426

PATIENT
  Age: 73 Year
  Sex: Male

DRUGS (10)
  1. EXTRA STRENGTH TYLENOL [Suspect]
     Indication: ARTHRALGIA
     Route: 048
  2. EXTRA STRENGTH TYLENOL [Suspect]
     Route: 048
  3. EXTRA STRENGTH TYLENOL [Suspect]
     Indication: NASOPHARYNGITIS
     Route: 048
  4. EXTRA STRENGTH TYLENOL [Suspect]
     Route: 048
  5. UNKNOWN MEDICATION [Suspect]
     Indication: NASOPHARYNGITIS
  6. CELEBREX [Concomitant]
     Indication: ARTHRALGIA
  7. UNKNOWN MEDICATION [Concomitant]
     Indication: HYPERTENSION
  8. ASPIRIN [Concomitant]
     Indication: CARDIAC DISORDER
  9. VITAMIN TAB [Concomitant]
     Indication: MEDICAL DIET
  10. SAW PALMETTO [Concomitant]
     Indication: PROSTATOMEGALY

REACTIONS (3)
  - DRUG ADMINISTRATION ERROR [None]
  - OVERDOSE [None]
  - RENAL FAILURE [None]
